FAERS Safety Report 10249715 (Version 1)
Quarter: 2014Q2

REPORT INFORMATION
  Report Type: Spontaneous
  Country: US (occurrence: None)
  Receive Date: 20140619
  Receipt Date: 20140619
  Transmission Date: 20141212
  Serious: Yes (Other)
  Sender: FDA-Public Use
  Company Number: None

PATIENT
  Age: 80 Year
  Sex: Male

DRUGS (1)
  1. XTANDI 40MG ASTELLAS [Suspect]
     Indication: PROSTATE CANCER
     Dosage: 160MG (4 CAPS)  ONCE DAILY BY MOUTH
     Route: 048
     Dates: start: 20140328, end: 20140522

REACTIONS (1)
  - Unevaluable event [None]
